FAERS Safety Report 4556054-5 (Version None)
Quarter: 2005Q1

REPORT INFORMATION
  Report Type: 
  Country: None (occurrence: None)
  Receive Date: 20050119
  Receipt Date: 20050112
  Transmission Date: 20050727
  Serious: Yes (Hospitalization)
  Sender: FDA-Public Use
  Company Number: GB-GLAXOSMITHKLINE-B0364223A

PATIENT
  Age: 68 Year
  Sex: Male

DRUGS (1)
  1. REQUIP [Suspect]
     Dosage: 5MG THREE TIMES PER DAY

REACTIONS (2)
  - DYSSTASIA [None]
  - IMMOBILE [None]
